FAERS Safety Report 18438204 (Version 1)
Quarter: 2020Q4

REPORT INFORMATION
  Report Type: Spontaneous
  Country: AT (occurrence: AT)
  Receive Date: 20201028
  Receipt Date: 20201028
  Transmission Date: 20210114
  Serious: Yes (Other)
  Sender: FDA-Public Use
  Company Number: AT-ASTRAZENECA-2020SF36911

PATIENT
  Sex: Female

DRUGS (3)
  1. LYNPARZA [Suspect]
     Active Substance: OLAPARIB
     Indication: OVARIAN CANCER
     Dosage: UNKOWN
     Route: 048
     Dates: start: 201902, end: 202010
  2. LYNPARZA [Suspect]
     Active Substance: OLAPARIB
     Indication: PULMONARY EMBOLISM
     Dosage: UNKOWN
     Route: 048
     Dates: start: 201902, end: 202010
  3. CAELYX CARBO [Concomitant]
     Indication: PULMONARY EMBOLISM
     Dosage: SECOND LINE 6 CYCLES UNKNOWN
     Route: 048
     Dates: start: 201902, end: 202010

REACTIONS (2)
  - Pulmonary embolism [Unknown]
  - Renal vein thrombosis [Unknown]

NARRATIVE: CASE EVENT DATE: 2019
